FAERS Safety Report 16749764 (Version 3)
Quarter: 2019Q4

REPORT INFORMATION
  Report Type: Spontaneous
  Country: JP (occurrence: JP)
  Receive Date: 20190828
  Receipt Date: 20191224
  Transmission Date: 20200122
  Serious: Yes (Hospitalization)
  Sender: FDA-Public Use
  Company Number: PHJP2019JP010829

PATIENT
  Age: 44 Year
  Sex: Female

DRUGS (4)
  1. VOLTAREN SUP [Suspect]
     Active Substance: DICLOFENAC SODIUM
     Indication: ARTHRALGIA
     Dosage: 25 MG,UNKNOWN
     Route: 054
  2. TRAMAL [Concomitant]
     Active Substance: TRAMADOL
     Indication: PRODUCT USED FOR UNKNOWN INDICATION
     Dosage: 100 MG,UNKNOWN
     Route: 048
  3. CALONAL [Suspect]
     Active Substance: ACETAMINOPHEN
     Indication: PRODUCT USED FOR UNKNOWN INDICATION
     Dosage: 1200 MG
     Route: 048
     Dates: end: 20181113
  4. LOXONIN [Suspect]
     Active Substance: LOXOPROFEN SODIUM
     Indication: PRODUCT USED FOR UNKNOWN INDICATION
     Dosage: 60 MG,UNKNOWN
     Route: 048
     Dates: end: 20181113

REACTIONS (6)
  - Large intestinal ulcer [Recovered/Resolved]
  - Inflammation [Recovering/Resolving]
  - Gastrointestinal wall thickening [Unknown]
  - Peptic ulcer [Recovered/Resolved]
  - Pyrexia [Recovering/Resolving]
  - Malaise [Unknown]

NARRATIVE: CASE EVENT DATE: 20181113
